FAERS Safety Report 10008922 (Version 1)
Quarter: 2014Q1

REPORT INFORMATION
  Report Type: Spontaneous
  Country: US (occurrence: US)
  Receive Date: 20140313
  Receipt Date: 20140313
  Transmission Date: 20141002
  Serious: No
  Sender: FDA-Public Use
  Company Number: US-INCYTE CORPORATION-2012IN001176

PATIENT
  Age: 83 Year
  Sex: Male

DRUGS (4)
  1. JAKAFI [Suspect]
     Indication: MYELOFIBROSIS
     Dosage: 10 MG, BID
     Route: 048
     Dates: start: 20120622
  2. IBUPROFEN [Concomitant]
     Indication: PYREXIA
  3. IBUPROFEN [Concomitant]
     Indication: BACK PAIN
  4. IBUPROFEN [Concomitant]
     Indication: PAIN IN EXTREMITY

REACTIONS (3)
  - Pyrexia [Not Recovered/Not Resolved]
  - Back pain [Not Recovered/Not Resolved]
  - Pain in extremity [Not Recovered/Not Resolved]
